FAERS Safety Report 24177548 (Version 2)
Quarter: 2024Q4

REPORT INFORMATION
  Report Type: Report from Study
  Country: US (occurrence: US)
  Receive Date: 20240806
  Receipt Date: 20241009
  Transmission Date: 20250115
  Serious: Yes (Other)
  Sender: ABBVIE
  Company Number: US-ABBVIE-5860851

PATIENT
  Sex: Female

DRUGS (2)
  1. RINVOQ [Suspect]
     Active Substance: UPADACITINIB
     Indication: Psoriasis
     Dosage: DRUG END DATE 2024
     Route: 048
     Dates: start: 20240319
  2. RINVOQ [Suspect]
     Active Substance: UPADACITINIB
     Indication: Psoriasis
     Dosage: DRUG START DATE 2024
     Route: 048

REACTIONS (7)
  - Sepsis [Recovering/Resolving]
  - Thrombosis [Recovering/Resolving]
  - Arthralgia [Not Recovered/Not Resolved]
  - Infection [Unknown]
  - Nephrolithiasis [Recovering/Resolving]
  - Drug ineffective [Unknown]
  - Surgery [Unknown]

NARRATIVE: CASE EVENT DATE: 20240101
